FAERS Safety Report 19092279 (Version 1)
Quarter: 2021Q2

REPORT INFORMATION
  Report Type: Report from Study
  Country: FR (occurrence: FR)
  Receive Date: 20210405
  Receipt Date: 20210405
  Transmission Date: 20210717
  Serious: Yes (Hospitalization)
  Sender: FDA-Public Use
  Company Number: FR-ROCHE-2768818

PATIENT
  Age: 66 Year
  Sex: Male

DRUGS (12)
  1. RUCAPARIB [Suspect]
     Active Substance: RUCAPARIB
     Indication: NEOPLASM
     Dosage: ON 04/DEC/2020, HE RECEIVED THE MOST RECENT DOSE OF RUCAPARIB PRIOR TO ONSET OF ADVERSE EVENT.
     Route: 048
     Dates: start: 20190723
  2. ZINNAT [Concomitant]
     Active Substance: CEFUROXIME
     Dates: start: 20210122
  3. PRIMPERAN [Concomitant]
     Active Substance: METOCLOPRAMIDE HYDROCHLORIDE
     Dates: start: 20190812, end: 20190902
  4. PHOSPHONEUROS [Concomitant]
     Active Substance: CALCIUM PHOSPHATE, DIBASIC, ANHYDROUS\MAGNESIUM GLYCEROPHOSPHATE\PHOSPHORIC ACID\SODIUM PHOSPHATE, DIBASIC
     Dates: start: 20191104, end: 20200327
  5. ATEZOLIZUMAB. [Suspect]
     Active Substance: ATEZOLIZUMAB
     Indication: NEOPLASM
     Dosage: ON 22/JAN/2021, HE RECEIVED THE MOST RECENT DOSE OF ATEOZOLIZUMAB PRIOR TO ONSET OF ADVERSE EVENT.
     Route: 042
     Dates: start: 20190812
  6. OFLOCET [Concomitant]
     Active Substance: OFLOXACIN
     Dates: start: 20210122
  7. DUROGESIC [Concomitant]
     Active Substance: FENTANYL
     Dates: start: 201911
  8. XGEVA [Concomitant]
     Active Substance: DENOSUMAB
     Dates: start: 202011
  9. MAGNESIUM [Concomitant]
     Active Substance: MAGNESIUM
     Dates: start: 20191104, end: 20200327
  10. FIRMAGON [Concomitant]
     Active Substance: DEGARELIX ACETATE
     Dates: start: 202003
  11. DOLIPRANE [Concomitant]
     Active Substance: ACETAMINOPHEN
     Dates: start: 202003
  12. OROCAL [Concomitant]
     Dates: start: 202003

REACTIONS (3)
  - Polyuria [Not Recovered/Not Resolved]
  - Polydipsia [Not Recovered/Not Resolved]
  - Febrile bone marrow aplasia [Not Recovered/Not Resolved]

NARRATIVE: CASE EVENT DATE: 20210205
